FAERS Safety Report 5125792-8 (Version None)
Quarter: 2006Q4

REPORT INFORMATION
  Report Type: 
  Country: None (occurrence: None)
  Receive Date: 20061012
  Receipt Date: 20060821
  Transmission Date: 20070319
  Serious: Yes (Hospitalization, Disabling, Other)
  Sender: FDA-Public Use
  Company Number: SG-PURDUE-MAG_2006_0000479

PATIENT
  Age: 31 Year
  Sex: Male

DRUGS (4)
  1. OXYCODONE HCL [Suspect]
     Indication: PAIN
     Dosage: UNK, UNK
     Route: 048
     Dates: start: 20060816
  2. OXYCODONE HCL [Suspect]
     Dosage: 30 MG, UNK
     Route: 048
     Dates: start: 20060816
  3. OXYCODONE HCL [Suspect]
     Dosage: UNK, UNK
     Route: 048
     Dates: start: 20060816
  4. NAPROXEN [Suspect]
     Indication: PAIN
     Dosage: UNK, UNK
     Route: 048
     Dates: start: 20060816

REACTIONS (5)
  - BLOOD CREATINE PHOSPHOKINASE INCREASED [None]
  - CREATININE RENAL CLEARANCE DECREASED [None]
  - DEHYDRATION [None]
  - MULTIPLE DRUG OVERDOSE ACCIDENTAL [None]
  - SOMNOLENCE [None]
